FAERS Safety Report 22606957 (Version 12)
Quarter: 2023Q4

REPORT INFORMATION
  Report Type: Report from Study
  Country: CN (occurrence: CN)
  Receive Date: 20230615
  Receipt Date: 20231107
  Transmission Date: 20240109
  Serious: Yes (Death, Hospitalization)
  Sender: FDA-Public Use
  Company Number: CN-JNJFOC-20230555586

PATIENT
  Age: 69 Year
  Sex: Male
  Weight: 65 kg

DRUGS (18)
  1. AMIVANTAMAB [Suspect]
     Active Substance: AMIVANTAMAB
     Indication: Non-small cell lung cancer metastatic
     Dosage: DOSE ON 11APR 2023, 18APR2023, 25APR2023, 02MAY2023, 09MAY2023
     Route: 042
     Dates: start: 20230411
  2. AMIVANTAMAB [Suspect]
     Active Substance: AMIVANTAMAB
     Route: 042
     Dates: start: 20230411, end: 20230509
  3. BISOPROLOL FUMARATE [Concomitant]
     Active Substance: BISOPROLOL FUMARATE
     Indication: Infusion related reaction
     Route: 048
     Dates: start: 20230101, end: 20230620
  4. INSULIN ASPART\INSULIN DEGLUDEC [Concomitant]
     Active Substance: INSULIN ASPART\INSULIN DEGLUDEC
     Indication: Diabetes mellitus
     Route: 058
     Dates: start: 20230101, end: 20230620
  5. RIVAROXABAN [Concomitant]
     Active Substance: RIVAROXABAN
     Indication: Thrombosis
     Route: 048
     Dates: start: 20230311, end: 20230604
  6. RIVAROXABAN [Concomitant]
     Active Substance: RIVAROXABAN
     Indication: Cerebral infarction
     Route: 048
     Dates: start: 20230614, end: 20230619
  7. DESONIDE [Concomitant]
     Active Substance: DESONIDE
     Indication: Prophylaxis
     Route: 061
     Dates: start: 20230412, end: 20230620
  8. ESOMEPRAZOLE [Concomitant]
     Active Substance: ESOMEPRAZOLE
     Indication: Gastrointestinal disorder therapy
     Route: 042
     Dates: start: 20230523, end: 20230529
  9. NUCLEOSIDES [Concomitant]
     Indication: Alanine aminotransferase
     Route: 048
     Dates: start: 20230605, end: 20230614
  10. CEFOTAXIME SODIUM;SULBACTAM [Concomitant]
     Indication: Pneumonia
     Route: 042
     Dates: start: 20230607, end: 20230607
  11. CEFOTAXIME SODIUM;SULBACTAM [Concomitant]
     Route: 042
     Dates: start: 20230608, end: 20230613
  12. METHYLPREDNISOLONE SODIUM SUCCINATE [Concomitant]
     Active Substance: METHYLPREDNISOLONE SODIUM SUCCINATE
     Indication: Pneumonia
     Route: 042
     Dates: start: 20230607, end: 20230612
  13. LEVOTHYROXINE SODIUM [Concomitant]
     Active Substance: LEVOTHYROXINE SODIUM
     Indication: Hypothyroidism
     Route: 048
     Dates: start: 20230608, end: 20230614
  14. AMBROXOL HYDROCHLORIDE [Concomitant]
     Active Substance: AMBROXOL HYDROCHLORIDE
     Indication: Pneumonia
     Route: 042
     Dates: start: 20230608, end: 20230609
  15. AMBROXOL HYDROCHLORIDE [Concomitant]
     Active Substance: AMBROXOL HYDROCHLORIDE
     Route: 042
     Dates: start: 20230621, end: 20230622
  16. AMBROXOL HYDROCHLORIDE [Concomitant]
     Active Substance: AMBROXOL HYDROCHLORIDE
     Route: 042
     Dates: start: 20230607, end: 20230607
  17. MINOCYCLINE [Concomitant]
     Active Substance: MINOCYCLINE HYDROCHLORIDE
     Indication: Prophylaxis
     Route: 048
     Dates: start: 20230412, end: 20230620
  18. MEROPENEM [Concomitant]
     Active Substance: MEROPENEM
     Indication: Pneumonia
     Route: 042
     Dates: start: 20230622, end: 20230622

REACTIONS (4)
  - Cerebral infarction [Fatal]
  - Hypoalbuminaemia [Recovering/Resolving]
  - Thrombosis [Not Recovered/Not Resolved]
  - Pleural effusion [Not Recovered/Not Resolved]

NARRATIVE: CASE EVENT DATE: 20230522
